FAERS Safety Report 16644137 (Version 10)
Quarter: 2023Q4

REPORT INFORMATION
  Report Type: Report from Study
  Country: CA (occurrence: CA)
  Receive Date: 20190729
  Receipt Date: 20231101
  Transmission Date: 20240110
  Serious: Yes (Other)
  Sender: FDA-Public Use
  Company Number: PHHY2017CA099167

PATIENT
  Age: 18 Year
  Sex: Female

DRUGS (9)
  1. COSENTYX [Suspect]
     Active Substance: SECUKINUMAB
     Indication: Ankylosing spondylitis
     Dosage: 150 MG, QMO
     Route: 058
     Dates: start: 20170508
  2. COSENTYX [Suspect]
     Active Substance: SECUKINUMAB
     Dosage: 300 MG, QMO
     Route: 058
     Dates: end: 20170529
  3. COSENTYX [Suspect]
     Active Substance: SECUKINUMAB
     Dosage: 150 MG, QW
     Route: 058
     Dates: start: 20171111
  4. COSENTYX [Suspect]
     Active Substance: SECUKINUMAB
     Dosage: 300 MG, QMO
     Route: 058
  5. COSENTYX [Suspect]
     Active Substance: SECUKINUMAB
     Dosage: 300 MG, QMO
     Route: 058
     Dates: start: 20190929
  6. CORTISONE [Concomitant]
     Active Substance: CORTISONE
     Indication: Product used for unknown indication
     Dosage: UNK
     Route: 065
  7. PREDNISONE [Concomitant]
     Active Substance: PREDNISONE
     Indication: Product used for unknown indication
     Dosage: 50 MG, QD
     Route: 065
  8. RANITIDINE [Concomitant]
     Active Substance: RANITIDINE
     Indication: Product used for unknown indication
     Dosage: 150 MG, BID
     Route: 065
  9. DIPHENHYDRAMINE [Concomitant]
     Active Substance: DIPHENHYDRAMINE
     Indication: Product used for unknown indication
     Dosage: 50 MG, QID
     Route: 065
     Dates: end: 20180110

REACTIONS (31)
  - Loss of consciousness [Unknown]
  - Rectal haemorrhage [Unknown]
  - Cellulitis [Unknown]
  - Haematochezia [Unknown]
  - Discomfort [Unknown]
  - Fatigue [Unknown]
  - Arthritis [Unknown]
  - Neck pain [Unknown]
  - Joint swelling [Unknown]
  - Tenderness [Unknown]
  - Back pain [Unknown]
  - Arthralgia [Unknown]
  - Musculoskeletal stiffness [Unknown]
  - Oropharyngeal pain [Unknown]
  - Cough [Recovering/Resolving]
  - Increased upper airway secretion [Recovering/Resolving]
  - Pyrexia [Recovered/Resolved]
  - Nasal congestion [Unknown]
  - Malaise [Unknown]
  - Infection [Recovered/Resolved]
  - Nausea [Unknown]
  - Eye pain [Unknown]
  - Breast mass [Unknown]
  - Swelling [Unknown]
  - Cyst [Unknown]
  - Injection site discolouration [Unknown]
  - Injection site swelling [Unknown]
  - Feeling hot [Unknown]
  - Hot flush [Unknown]
  - Food allergy [Unknown]
  - Hypersensitivity [Unknown]

NARRATIVE: CASE EVENT DATE: 20170601
